FAERS Safety Report 23170995 (Version 1)
Quarter: 2023Q4

REPORT INFORMATION
  Report Type: Spontaneous
  Country: FR (occurrence: FR)
  Receive Date: 20231110
  Receipt Date: 20231110
  Transmission Date: 20240109
  Serious: Yes (Death)
  Sender: FDA-Public Use
  Company Number: FR-JNJFOC-20231073195

PATIENT
  Age: 75 Year
  Sex: Male

DRUGS (2)
  1. DEXAMETHASONE [Suspect]
     Active Substance: DEXAMETHASONE
     Indication: Plasma cell myeloma
     Dosage: 1 DOSE(S)/WEEK 1 WEEK(S)/CYCLE
     Route: 065
  2. DARATUMUMAB [Suspect]
     Active Substance: DARATUMUMAB
     Indication: Plasma cell myeloma
     Dosage: 1 DOSE(S)/WEEK 1 WEEK(S)/CYCLE
     Route: 065

REACTIONS (2)
  - Sepsis [Fatal]
  - General physical condition abnormal [Fatal]
